FAERS Safety Report 25306210 (Version 1)
Quarter: 2025Q2

REPORT INFORMATION
  Report Type: Spontaneous
  Country: CH (occurrence: CH)
  Receive Date: 20250513
  Receipt Date: 20250513
  Transmission Date: 20250716
  Serious: Yes (Hospitalization)
  Sender: ASTELLAS
  Company Number: None

PATIENT
  Age: 75 Year
  Sex: Male
  Weight: 103 kg

DRUGS (21)
  1. PROGRAF [Interacting]
     Active Substance: TACROLIMUS
     Indication: Prophylaxis against graft versus host disease
     Route: 048
     Dates: start: 20241210, end: 20241213
  2. PROGRAF [Interacting]
     Active Substance: TACROLIMUS
     Route: 048
     Dates: start: 20241214, end: 20241215
  3. PROGRAF [Interacting]
     Active Substance: TACROLIMUS
     Route: 048
     Dates: start: 20241216, end: 20241217
  4. PROGRAF [Interacting]
     Active Substance: TACROLIMUS
     Route: 042
     Dates: start: 20241219, end: 20241219
  5. PROGRAF [Interacting]
     Active Substance: TACROLIMUS
     Route: 042
     Dates: start: 20241220, end: 20241221
  6. PROGRAF [Interacting]
     Active Substance: TACROLIMUS
     Route: 042
     Dates: start: 20241222, end: 20241222
  7. PROGRAF [Interacting]
     Active Substance: TACROLIMUS
     Route: 042
     Dates: start: 20241223, end: 20241223
  8. PROGRAF [Interacting]
     Active Substance: TACROLIMUS
     Dosage: BREAK FROM 24-DEC-2024, FURTHER ORAL FROM 25-DEC-2024 AFTER MIRROR DETERMINATION
     Route: 048
     Dates: start: 20241225
  9. VANCOCIN [Suspect]
     Active Substance: VANCOMYCIN HYDROCHLORIDE
     Indication: Product used for unknown indication
     Route: 042
     Dates: start: 20241219, end: 20241223
  10. ARCOXIA [Suspect]
     Active Substance: ETORICOXIB
     Indication: Product used for unknown indication
     Route: 048
     Dates: start: 20241220, end: 20241220
  11. ARCOXIA [Suspect]
     Active Substance: ETORICOXIB
     Route: 048
     Dates: start: 20241225, end: 20241225
  12. ARCOXIA [Suspect]
     Active Substance: ETORICOXIB
     Route: 048
     Dates: start: 20241226, end: 20241226
  13. ENTRESTO [Suspect]
     Active Substance: SACUBITRIL\VALSARTAN
     Indication: Product used for unknown indication
     Route: 048
     Dates: end: 20241223
  14. ENTRESTO [Suspect]
     Active Substance: SACUBITRIL\VALSARTAN
     Route: 048
     Dates: start: 20241230
  15. NOXAFIL [Interacting]
     Active Substance: POSACONAZOLE
     Indication: Product used for unknown indication
     Route: 048
     Dates: start: 20250105
  16. FLUDARABINE [Concomitant]
     Active Substance: FLUDARABINE PHOSPHATE
     Indication: Acute myeloid leukaemia
     Route: 065
     Dates: start: 202412
  17. TEPADINA [Concomitant]
     Active Substance: THIOTEPA
     Indication: Acute myeloid leukaemia
     Route: 065
     Dates: start: 202412
  18. BUSULFAN [Concomitant]
     Active Substance: BUSULFAN
     Indication: Acute myeloid leukaemia
     Route: 065
     Dates: start: 202412
  19. CYCLOPHOSPHAMIDE [Concomitant]
     Active Substance: CYCLOPHOSPHAMIDE
     Indication: Prophylaxis against graft versus host disease
     Route: 065
  20. MYCOPHENOLATE MOFETIL [Concomitant]
     Active Substance: MYCOPHENOLATE MOFETIL
     Indication: Prophylaxis against graft versus host disease
     Route: 065
  21. G- CSF [Concomitant]
     Indication: Prophylaxis against graft versus host disease
     Route: 065
     Dates: end: 20241222

REACTIONS (5)
  - Drug level above therapeutic [Recovered/Resolved]
  - Nephropathy toxic [Recovering/Resolving]
  - Nephropathy toxic [Recovering/Resolving]
  - Drug interaction [Recovering/Resolving]
  - Off label use [Unknown]

NARRATIVE: CASE EVENT DATE: 20241210
